APPROVED DRUG PRODUCT: URSODIOL
Active Ingredient: URSODIOL
Strength: 250MG
Dosage Form/Route: TABLET;ORAL
Application: A213504 | Product #001 | TE Code: AB
Applicant: STRIDES PHARMA GLOBAL PTE LTD
Approved: Aug 20, 2020 | RLD: No | RS: No | Type: RX